FAERS Safety Report 8832886 (Version 1)
Quarter: 2012Q4

REPORT INFORMATION
  Report Type: 
  Country: US (occurrence: None)
  Receive Date: 20121009
  Receipt Date: 20121009
  Transmission Date: 20130627
  Serious: No
  Sender: FDA-Public Use
  Company Number: None

PATIENT
  Sex: Male
  Weight: 85 kg

DRUGS (6)
  1. INTRON A [Suspect]
     Route: 042
     Dates: start: 20120319, end: 20120516
  2. HYDROCHLOROTHIZIDE [Concomitant]
  3. LISINOPRIL [Concomitant]
  4. MELOXICAM [Concomitant]
  5. OMEPRAZOLE [Concomitant]
  6. PRAVASTATIN [Concomitant]

REACTIONS (1)
  - Presyncope [None]
